FAERS Safety Report 8921405 (Version 8)
Quarter: 2016Q2

REPORT INFORMATION
  Report Type: Spontaneous
  Country: US (occurrence: US)
  Receive Date: 20121121
  Receipt Date: 20160519
  Transmission Date: 20160815
  Serious: Yes (Hospitalization, Disabling, Other)
  Sender: FDA-Public Use
  Company Number: US-009507513-1211USA008131

PATIENT
  Sex: Female
  Weight: 72.56 kg

DRUGS (4)
  1. FOSAMAX [Suspect]
     Active Substance: ALENDRONATE SODIUM
     Indication: OSTEOPOROSIS
     Dosage: UNK, UNKNOWN
     Route: 048
     Dates: start: 19980518, end: 19990927
  2. FOSAMAX [Suspect]
     Active Substance: ALENDRONATE SODIUM
     Dosage: UNK, UNKNOWN
     Route: 048
     Dates: start: 20000609
  3. FOSAMAX [Suspect]
     Active Substance: ALENDRONATE SODIUM
     Dosage: 70 MG, UNKNOWN
     Route: 048
     Dates: end: 20070105
  4. VITAMINS (UNSPECIFIED) [Concomitant]
     Active Substance: VITAMINS
     Indication: PRODUCT USED FOR UNKNOWN INDICATION
     Dosage: 1 DF, QD
     Route: 048
     Dates: start: 1980

REACTIONS (34)
  - Low turnover osteopathy [Unknown]
  - Multiple fractures [Unknown]
  - Respiratory failure [Recovered/Resolved]
  - Fall [Unknown]
  - Gastrooesophageal reflux disease [Unknown]
  - Fall [Unknown]
  - Osteitis [Unknown]
  - Femur fracture [Unknown]
  - Oophorectomy bilateral [Unknown]
  - Fall [Unknown]
  - Osteosclerosis [Unknown]
  - Intramedullary rod insertion [Unknown]
  - Incision site cellulitis [Unknown]
  - Foot fracture [Unknown]
  - Chest pain [Unknown]
  - Osteopenia [Unknown]
  - Skin abrasion [Unknown]
  - Urinary tract infection [Unknown]
  - Osteoporosis [Unknown]
  - Spinal fusion surgery [Unknown]
  - Parkinson^s disease [Unknown]
  - Hemiparesis [Unknown]
  - Impaired healing [Unknown]
  - Femur fracture [Recovered/Resolved]
  - Electrocardiogram change [Unknown]
  - Fall [Unknown]
  - Fall [Recovering/Resolving]
  - Lumbar vertebral fracture [Unknown]
  - Femoral neck fracture [Unknown]
  - Femur fracture [Unknown]
  - Rash [Unknown]
  - Anaemia [Unknown]
  - Internal fixation of fracture [Unknown]
  - Spinal osteoarthritis [Unknown]

NARRATIVE: CASE EVENT DATE: 2000
